FAERS Safety Report 24368186 (Version 1)
Quarter: 2024Q3

REPORT INFORMATION
  Report Type: Report from Study
  Country: CR (occurrence: CR)
  Receive Date: 20240926
  Receipt Date: 20240926
  Transmission Date: 20241016
  Serious: Yes (Other)
  Sender: BIOGEN
  Company Number: CR-BIOGEN-2024BI01283665

PATIENT
  Age: 0 Year
  Sex: Male

DRUGS (2)
  1. TYSABRI [Suspect]
     Active Substance: NATALIZUMAB
     Indication: Maternal exposure timing unspecified
     Route: 050
     Dates: start: 20200101, end: 20220213
  2. TYSABRI [Suspect]
     Active Substance: NATALIZUMAB
     Route: 050
     Dates: start: 20220213, end: 20220313

REACTIONS (9)
  - Neonatal respiratory failure [Unknown]
  - Low birth weight baby [Unknown]
  - Umbilical cord around neck [Unknown]
  - Neonatal disorder [Unknown]
  - Premature baby [Unknown]
  - Jaundice neonatal [Unknown]
  - Haemangioma of skin [Not Recovered/Not Resolved]
  - Foetal exposure during pregnancy [Recovered/Resolved]
  - Exposure via breast milk [Recovered/Resolved]

NARRATIVE: CASE EVENT DATE: 20210501
